FAERS Safety Report 4505637-7 (Version None)
Quarter: 2004Q4

REPORT INFORMATION
  Report Type: 
  Country: None (occurrence: None)
  Receive Date: 20041119
  Receipt Date: 20030121
  Transmission Date: 20050328
  Serious: Yes (Hospitalization, Disabling, Other)
  Sender: FDA-Public Use
  Company Number: US-MERCK-0301USA02073

PATIENT
  Age: 62 Year
  Sex: Female

DRUGS (8)
  1. VIOXX [Suspect]
     Indication: PAIN
     Route: 048
     Dates: start: 20010409, end: 20020221
  2. VIOXX [Suspect]
     Indication: ARTHRITIS
     Route: 048
     Dates: start: 20010409, end: 20020221
  3. HUMULIN N [Concomitant]
     Route: 065
  4. IBUPROFEN [Concomitant]
     Indication: ARTHRITIS
     Route: 065
     Dates: start: 20010501
  5. DIOVAN [Concomitant]
     Route: 065
     Dates: start: 20000701
  6. XANAX [Concomitant]
     Indication: DEPRESSION
     Route: 065
     Dates: start: 20000325
  7. VALIUM [Concomitant]
     Indication: DEPRESSION
     Route: 065
     Dates: start: 20000305
  8. SYNTHROID [Concomitant]
     Indication: THYROID DISORDER
     Route: 065
     Dates: start: 20000801

REACTIONS (19)
  - ANGINA PECTORIS [None]
  - CATARACT [None]
  - CHRONIC OBSTRUCTIVE AIRWAYS DISEASE [None]
  - CONSTIPATION [None]
  - CORONARY ARTERY DISEASE [None]
  - DIABETES MELLITUS NON-INSULIN-DEPENDENT [None]
  - DIARRHOEA [None]
  - DRUG INEFFECTIVE [None]
  - HIATUS HERNIA [None]
  - HYPERLIPIDAEMIA [None]
  - HYPERTENSION [None]
  - INSOMNIA [None]
  - IRRITABLE BOWEL SYNDROME [None]
  - LUNG NEOPLASM [None]
  - MYOCARDIAL INFARCTION [None]
  - NON-CARDIAC CHEST PAIN [None]
  - OEDEMA PERIPHERAL [None]
  - OSTEOARTHRITIS [None]
  - SPONDYLOLISTHESIS [None]
